FAERS Safety Report 4684271-2 (Version None)
Quarter: 2005Q2

REPORT INFORMATION
  Report Type: 
  Country: None (occurrence: None)
  Receive Date: 20050531
  Receipt Date: 20041215
  Transmission Date: 20051028
  Serious: Yes (Hospitalization, Other)
  Sender: FDA-Public Use
  Company Number: 200417836US

PATIENT
  Age: 37 Year
  Sex: Male
  Weight: 77.3 kg

DRUGS (4)
  1. LOVENOX [Suspect]
     Indication: ANTITHROMBIN III DEFICIENCY
     Dosage: 30 MG BID
     Dates: start: 19990101, end: 20040901
  2. LOVENOX [Suspect]
     Indication: ANTITHROMBIN III DEFICIENCY
     Dosage: 100 MG BID
     Dates: start: 20040901, end: 20040921
  3. LOVENOX [Suspect]
     Indication: ANTITHROMBIN III DEFICIENCY
     Dosage: 80 MG BID
     Dates: start: 20040921, end: 20040901
  4. WARFARIN SODIUM [Concomitant]

REACTIONS (7)
  - FATIGUE [None]
  - HYPOAESTHESIA [None]
  - MUSCLE TIGHTNESS [None]
  - PAIN IN EXTREMITY [None]
  - PERIPHERAL ISCHAEMIA [None]
  - SOMNOLENCE [None]
  - THROMBOSIS [None]
